FAERS Safety Report 16426767 (Version 1)
Quarter: 2019Q3

REPORT INFORMATION
  Report Type: Spontaneous
  Country: US (occurrence: US)
  Receive Date: 20190612
  Receipt Date: 20190612
  Transmission Date: 20191004
  Serious: Yes (Life-Threatening, Hospitalization)
  Sender: FDA-Public Use
  Company Number: None

PATIENT
  Age: 64 Year
  Sex: Male
  Weight: 76.5 kg

DRUGS (3)
  1. METHYLPREDNISOLONE 4MG PO QDAY [Concomitant]
  2. CIPROFLOXACIN. [Suspect]
     Active Substance: CIPROFLOXACIN
     Indication: POST PROCEDURAL INFECTION
     Route: 048
     Dates: start: 20190408, end: 20190418
  3. LEFLUNOMIDE20 MG PO QDAY [Concomitant]

REACTIONS (2)
  - Pericardial haemorrhage [None]
  - Aortic dissection [None]

NARRATIVE: CASE EVENT DATE: 20190415
